FAERS Safety Report 5397290-8 (Version None)
Quarter: 2007Q3

REPORT INFORMATION
  Report Type: 
  Country: None (occurrence: None)
  Receive Date: 20070723
  Receipt Date: 20070712
  Transmission Date: 20080115
  Serious: Yes (Life-Threatening, Hospitalization)
  Sender: FDA-Public Use
  Company Number: 2007-03294

PATIENT
  Age: 43 Year
  Sex: Female

DRUGS (3)
  1. TRELSTAR DEPOT [Suspect]
     Indication: BREAST CANCER
     Dosage: 3.75 MG, INTRAMUSCULAR
     Route: 030
     Dates: start: 20061221, end: 20070613
  2. EXEMESTANE [Concomitant]
  3. CHEMOTHERAPY                (DIPHENYDRAMINE) [Concomitant]

REACTIONS (1)
  - PULMONARY EMBOLISM [None]
